FAERS Safety Report 8383113-1 (Version None)
Quarter: 2012Q2

REPORT INFORMATION
  Report Type: 
  Country: None (occurrence: None)
  Receive Date: 20120524
  Receipt Date: 20120522
  Transmission Date: 20120825
  Serious: Yes (Other)
  Sender: FDA-Public Use
  Company Number: CN-JNJFOC-20120500307

PATIENT
  Sex: Male
  Weight: 60 kg

DRUGS (1)
  1. ITRACONAZOLE [Suspect]
     Indication: ONYCHOMYCOSIS
     Route: 048
     Dates: start: 20110323, end: 20110327

REACTIONS (3)
  - CHEST PAIN [None]
  - CHEST DISCOMFORT [None]
  - OEDEMA PERIPHERAL [None]
